FAERS Safety Report 17650767 (Version 1)
Quarter: 2020Q2

REPORT INFORMATION
  Report Type: Spontaneous
  Country: US (occurrence: US)
  Receive Date: 20200409
  Receipt Date: 20200409
  Transmission Date: 20200713
  Serious: Yes (Other)
  Sender: FDA-Public Use
  Company Number: US-JNJFOC-20200401494

PATIENT
  Age: 31 Year
  Sex: Male

DRUGS (1)
  1. SYMTUZA [Suspect]
     Active Substance: COBICISTAT\DARUNAVIR\EMTRICITABINE\TENOFOVIR ALAFENAMIDE
     Indication: HIV INFECTION
     Dosage: DRV 800MG, COBI150 MG, EMTRIVA, 200MG, TAF10MG
     Route: 048
     Dates: start: 202001

REACTIONS (2)
  - Liver function test abnormal [Unknown]
  - Hepatitis A [Unknown]
